FAERS Safety Report 22127791 (Version 2)
Quarter: 2023Q2

REPORT INFORMATION
  Report Type: Report from Study
  Country: PT (occurrence: PT)
  Receive Date: 20230323
  Receipt Date: 20230404
  Transmission Date: 20230722
  Serious: Yes (Other)
  Sender: FDA-Public Use
  Company Number: PT-ABBVIE-4697801

PATIENT
  Age: 75 Year
  Sex: Female

DRUGS (7)
  1. CARBIDOPA\LEVODOPA [Suspect]
     Active Substance: CARBIDOPA\LEVODOPA
     Indication: Parkinson^s disease
     Dosage: 20 MG + 5 MG, MORN:8CC;MAINT:4.5CC;EXTRA:1CC, LAST ADMIN DATE:2023
     Route: 050
     Dates: start: 20230208
  2. CARBIDOPA\LEVODOPA [Suspect]
     Active Substance: CARBIDOPA\LEVODOPA
     Dosage: 20 MG + 5 MG, MORN:11CC;MAINT:5CC;EXTRA:1.5CC,
     Route: 050
     Dates: start: 20230302, end: 202303
  3. CARBIDOPA\LEVODOPA [Suspect]
     Active Substance: CARBIDOPA\LEVODOPA
     Dosage: 20 MG + 5 MG 11CC;MAINT:4.8CC;EXTRA:1.5CC
     Route: 050
     Dates: start: 202303
  4. RIVOTRIL [Concomitant]
     Active Substance: CLONAZEPAM
     Indication: Product used for unknown indication
     Dosage: 1 TABLET, FORM STRENGTH: 0.5 MILLIGRAM, AT BEDTIME
     Route: 048
  5. LETROZOLE [Concomitant]
     Active Substance: LETROZOLE
     Indication: Product used for unknown indication
     Dosage: 1 TABLET, FORM STRENGTH: 2.5 MILLIGRAM, AT DINNER
     Route: 048
  6. VENLAFAXINE [Concomitant]
     Active Substance: VENLAFAXINE HYDROCHLORIDE
     Indication: Product used for unknown indication
     Dosage: 1 TABLET, FORM STRENGTH: 75 MILLIGRAM, AT BREAKFAST
     Route: 048
  7. Buscalma (buspirone) [Concomitant]
     Indication: Product used for unknown indication
     Dosage: 2 TABLET, FORM STRENGTH: 5 MG, START DATE TEXT: BEFORE DUODOPA
     Route: 048

REACTIONS (3)
  - Head injury [Recovered/Resolved]
  - Wound [Recovered/Resolved]
  - Fall [Recovered/Resolved]

NARRATIVE: CASE EVENT DATE: 20230316
